FAERS Safety Report 11439417 (Version 1)
Quarter: 2015Q3

REPORT INFORMATION
  Report Type: Spontaneous
  Country: US (occurrence: US)
  Receive Date: 20150901
  Receipt Date: 20150901
  Transmission Date: 20151125
  Serious: No
  Sender: FDA-Public Use
  Company Number: US-ROCHE-1081231

PATIENT
  Age: 53 Year
  Sex: Female
  Weight: 71.28 kg

DRUGS (3)
  1. COPEGUS [Suspect]
     Active Substance: RIBAVIRIN
     Indication: CHRONIC HEPATITIS C
     Dosage: DIVIDED DOSES
     Route: 048
     Dates: start: 20120427
  2. PEGASYS [Suspect]
     Active Substance: PEGINTERFERON ALFA-2A
     Indication: CHRONIC HEPATITIS C
     Route: 058
     Dates: start: 20120427
  3. TELAPREVIR [Suspect]
     Active Substance: TELAPREVIR
     Indication: CHRONIC HEPATITIS C
     Route: 048
     Dates: start: 20120427, end: 20120722

REACTIONS (6)
  - Musculoskeletal pain [Unknown]
  - Pruritus generalised [Not Recovered/Not Resolved]
  - Feeling abnormal [Unknown]
  - Pruritus [Unknown]
  - Diarrhoea [Unknown]
  - Abdominal pain [Unknown]

NARRATIVE: CASE EVENT DATE: 201206
